FAERS Safety Report 7764933-0 (Version None)
Quarter: 2011Q3

REPORT INFORMATION
  Report Type: 
  Country: None (occurrence: None)
  Receive Date: 20110921
  Receipt Date: 20110910
  Transmission Date: 20111222
  Serious: Yes (Death, Other)
  Sender: FDA-Public Use
  Company Number: AR-BAXTER-2011BH029117

PATIENT

DRUGS (2)
  1. FEIBA [Suspect]
     Indication: PROPHYLAXIS
     Route: 065
  2. FEIBA [Suspect]
     Route: 065

REACTIONS (1)
  - HAEMORRHAGE INTRACRANIAL [None]
